FAERS Safety Report 19983977 (Version 3)
Quarter: 2021Q4

REPORT INFORMATION
  Report Type: Report from Study
  Country: CA (occurrence: CA)
  Receive Date: 20211022
  Receipt Date: 20211225
  Transmission Date: 20220303
  Serious: Yes (Hospitalization)
  Sender: FDA-Public Use
  Company Number: CA-NOVARTISPH-NVSC2021CA173608

PATIENT
  Age: 46 Year
  Sex: Female

DRUGS (4)
  1. COSENTYX [Suspect]
     Active Substance: SECUKINUMAB
     Indication: Ankylosing spondylitis
     Dosage: 150 MG, QW (WEEKS 0, 1, 2, AND 3)
     Route: 058
     Dates: start: 20210721
  2. COSENTYX [Suspect]
     Active Substance: SECUKINUMAB
     Dosage: 150 MG, QMO
     Route: 058
  3. CELEBREX [Concomitant]
     Active Substance: CELECOXIB
     Indication: Product used for unknown indication
     Dosage: UNK UNK, BIW
     Route: 048
  4. NAPROXEN [Concomitant]
     Active Substance: NAPROXEN
     Indication: Product used for unknown indication
     Dosage: UNK, UNKNOWN
     Route: 048

REACTIONS (4)
  - Urinary tract infection [Unknown]
  - Nausea [Unknown]
  - Abdominal pain upper [Unknown]
  - Drug ineffective [Unknown]

NARRATIVE: CASE EVENT DATE: 20211014
